FAERS Safety Report 7361792-5 (Version None)
Quarter: 2011Q1

REPORT INFORMATION
  Report Type: 
  Country: None (occurrence: None)
  Receive Date: 20110318
  Receipt Date: 20110310
  Transmission Date: 20110831
  Serious: Yes (Other)
  Sender: FDA-Public Use
  Company Number: JP-B.I. PHARMACEUTICALS,INC./RIDGEFIELD-2010-DE-06572GD

PATIENT
  Sex: Male

DRUGS (9)
  1. ZETIA [Suspect]
     Dosage: 10 MG
     Dates: start: 20080714, end: 20090807
  2. VOGLIBOSE [Concomitant]
     Dosage: 0.6 MG
     Dates: start: 20080326
  3. AMARYL [Concomitant]
     Indication: INSULIN RESISTANCE
     Dosage: 1 MG
     Dates: start: 20080519
  4. GLIMICRON [Concomitant]
     Dosage: 40 MG
     Dates: start: 20080904, end: 20080930
  5. ACTOS [Suspect]
     Dosage: 15 MG
     Dates: start: 20080326, end: 20090807
  6. OMEPRAL [Concomitant]
     Dosage: 10 MG
     Dates: start: 20080519
  7. ASPIRIN [Concomitant]
     Dosage: 100 MG
     Dates: start: 20080519
  8. MICARDIS [Suspect]
     Indication: HYPERTENSION
     Dosage: 40 MG
     Route: 048
     Dates: start: 20090423, end: 20090807
  9. PANALDINE [Concomitant]
     Dosage: 200 MG
     Dates: start: 20080620

REACTIONS (3)
  - CORONARY ARTERY RESTENOSIS [None]
  - BLOOD CREATININE INCREASED [None]
  - BLOOD CREATINE PHOSPHOKINASE INCREASED [None]
